FAERS Safety Report 19076166 (Version 3)
Quarter: 2021Q2

REPORT INFORMATION
  Report Type: Spontaneous
  Country: JP (occurrence: JP)
  Receive Date: 20210330
  Receipt Date: 20210419
  Transmission Date: 20210717
  Serious: Yes (Other)
  Sender: FDA-Public Use
  Company Number: JP-TAKEDA-2021TJP012038

PATIENT
  Age: 49 Year
  Sex: Female

DRUGS (8)
  1. TRINTELLIX [Suspect]
     Active Substance: VORTIOXETINE HYDROBROMIDE
     Indication: DEPRESSION
     Dosage: 10 MILLIGRAM, QD
     Route: 048
     Dates: start: 20210224, end: 20210317
  2. LEXOTAN [Concomitant]
     Active Substance: BROMAZEPAM
     Dosage: 1 MILLIGRAM, BID
     Route: 048
  3. FERROUS SULFATE. [Concomitant]
     Active Substance: FERROUS SULFATE
     Dosage: 105 MILLIGRAM, QD
     Route: 048
     Dates: start: 20210106, end: 20210406
  4. LUVOX [Concomitant]
     Active Substance: FLUVOXAMINE MALEATE
     Dosage: 50 MILLIGRAM, QD
     Route: 048
  5. PZC [PERPHENAZINE MALEATE] [Concomitant]
     Active Substance: PERPHENAZINE DIMALEATE
     Dosage: 2 MILLIGRAM, BID
     Route: 048
  6. MEILAX [Concomitant]
     Active Substance: ETHYL LOFLAZEPATE
     Dosage: 1 MILLIGRAM, BID
     Route: 048
  7. TRAZODONE [Concomitant]
     Active Substance: TRAZODONE HYDROCHLORIDE
     Dosage: 25 MILLIGRAM, QD
     Route: 048
  8. NAUZELIN [Concomitant]
     Active Substance: DOMPERIDONE
     Indication: NAUSEA
     Dosage: 5 MILLIGRAM
     Route: 048

REACTIONS (2)
  - Illusion [Recovered/Resolved]
  - Hallucination, visual [Recovered/Resolved]

NARRATIVE: CASE EVENT DATE: 20210309
